FAERS Safety Report 5603190-8 (Version None)
Quarter: 2008Q1

REPORT INFORMATION
  Report Type: 
  Country: None (occurrence: None)
  Receive Date: 20080123
  Receipt Date: 20080107
  Transmission Date: 20080703
  Serious: Yes (Hospitalization)
  Sender: FDA-Public Use
  Company Number: B0502585A

PATIENT
  Age: 4 Year
  Sex: Male

DRUGS (1)
  1. LAMOTRIGINE [Suspect]
     Indication: ACCIDENTAL OVERDOSE
     Dosage: ORAL
     Route: 048

REACTIONS (8)
  - ACCIDENTAL DRUG INTAKE BY CHILD [None]
  - ATAXIA [None]
  - DRUG TOXICITY [None]
  - DYSARTHRIA [None]
  - DYSPHAGIA [None]
  - IRRITABILITY [None]
  - SOMNOLENCE [None]
  - TREMOR [None]
